FAERS Safety Report 10368517 (Version 1)
Quarter: 2014Q3

REPORT INFORMATION
  Report Type: Spontaneous
  Country: US (occurrence: None)
  Receive Date: 20140806
  Receipt Date: 20140806
  Transmission Date: 20150326
  Serious: No
  Sender: FDA-Public Use
  Company Number: None

PATIENT
  Age: 71 Year
  Sex: Female

DRUGS (1)
  1. FORTEO [Suspect]
     Active Substance: TERIPARATIDE
     Indication: SENILE OSTEOPOROSIS
     Route: 058
     Dates: start: 20130213

REACTIONS (6)
  - Abdominal discomfort [None]
  - Feeling abnormal [None]
  - Nasopharyngitis [None]
  - Glossodynia [None]
  - Tongue disorder [None]
  - Pneumonia [None]

NARRATIVE: CASE EVENT DATE: 20140805
